FAERS Safety Report 6903990-8 (Version None)
Quarter: 2010Q3

REPORT INFORMATION
  Report Type: 
  Country: None (occurrence: None)
  Receive Date: 20100804
  Receipt Date: 20100722
  Transmission Date: 20110219
  Serious: Yes (Hospitalization, Other)
  Sender: FDA-Public Use
  Company Number: US-RANBAXY-2010US-36277

PATIENT

DRUGS (15)
  1. CALAN [Suspect]
     Indication: HEART RATE INCREASED
     Dosage: 240 MG, QD
     Route: 065
  2. CALAN [Suspect]
     Dosage: 240 MG, BID
     Route: 065
     Dates: start: 20100101
  3. ESTRADIOL [Concomitant]
     Indication: PRODUCT USED FOR UNKNOWN INDICATION
     Dosage: 1 MG
     Route: 065
  4. THEO-24 [Concomitant]
     Indication: DYSPNOEA
     Dosage: 1 MG
  5. CALCIUM [Concomitant]
     Indication: PRODUCT USED FOR UNKNOWN INDICATION
     Dosage: UNK
     Route: 065
  6. NEXIUM [Concomitant]
     Indication: PRODUCT USED FOR UNKNOWN INDICATION
     Dosage: UNK
     Route: 065
  7. ASACOL [Concomitant]
     Indication: PRODUCT USED FOR UNKNOWN INDICATION
     Dosage: 400 MG
     Route: 065
  8. MEDROXYPROGESTERONE [Concomitant]
     Indication: PRODUCT USED FOR UNKNOWN INDICATION
     Dosage: 2.5 MG
     Route: 065
  9. TYLOX [Concomitant]
     Indication: PRODUCT USED FOR UNKNOWN INDICATION
     Dosage: UNK
     Route: 065
  10. JANUVIA [Concomitant]
     Indication: PRODUCT USED FOR UNKNOWN INDICATION
     Dosage: UNK
     Route: 065
  11. THYROID TAB [Concomitant]
     Indication: PRODUCT USED FOR UNKNOWN INDICATION
     Dosage: 120 MG
     Route: 065
  12. XYZAL [Concomitant]
     Indication: HYPERSENSITIVITY
     Route: 065
  13. KADIAN [Concomitant]
     Indication: OSTEOARTHRITIS
     Route: 065
  14. PREVACID [Concomitant]
     Indication: GASTRIC DISORDER
     Route: 065
  15. LOTREL [Concomitant]
     Indication: HYPERTENSION

REACTIONS (11)
  - BLOOD GLUCOSE INCREASED [None]
  - BLOOD PRESSURE INCREASED [None]
  - COLITIS [None]
  - GALLBLADDER OPERATION [None]
  - GASTROINTESTINAL DISORDER [None]
  - GASTROINTESTINAL SURGERY [None]
  - HEART RATE INCREASED [None]
  - HYPERSENSITIVITY [None]
  - HYSTERECTOMY [None]
  - OSTEOARTHRITIS [None]
  - PAIN [None]
